FAERS Safety Report 19202017 (Version 3)
Quarter: 2024Q3

REPORT INFORMATION
  Report Type: Report from Study
  Country: CO (occurrence: CO)
  Receive Date: 20210502
  Receipt Date: 20240916
  Transmission Date: 20241016
  Serious: Yes (Disabling, Other)
  Sender: NOVARTIS
  Company Number: CO-NOVARTISPH-NVSC2021CO092405

PATIENT
  Sex: Male
  Weight: 63 kg

DRUGS (2)
  1. TASIGNA [Suspect]
     Active Substance: NILOTINIB
     Indication: Chronic myeloid leukaemia
     Dosage: UNK
     Route: 048
  2. TASIGNA [Suspect]
     Active Substance: NILOTINIB
     Dosage: 300 MG, Q12H
     Route: 048
     Dates: start: 20210315

REACTIONS (2)
  - Intellectual disability [Unknown]
  - Autism spectrum disorder [Unknown]
